FAERS Safety Report 8261286-9 (Version None)
Quarter: 2012Q2

REPORT INFORMATION
  Report Type: 
  Country: None (occurrence: None)
  Receive Date: 20120405
  Receipt Date: 20120402
  Transmission Date: 20120825
  Serious: Yes (Other)
  Sender: FDA-Public Use
  Company Number: US-BAYER-2012-032814

PATIENT
  Age: 46 Year
  Sex: Male

DRUGS (2)
  1. NEXAVAR [Suspect]
     Indication: HEPATIC NEOPLASM MALIGNANT
     Dosage: UNK
     Dates: start: 20120121, end: 20120124
  2. NEXAVAR [Suspect]
     Dosage: 200 MG, BID
     Dates: start: 20120301, end: 20120331

REACTIONS (6)
  - PRURITUS [None]
  - FEELING ABNORMAL [None]
  - ABDOMINAL PAIN UPPER [None]
  - INSOMNIA [None]
  - APHAGIA [None]
  - DIARRHOEA [None]
